FAERS Safety Report 11633976 (Version 1)
Quarter: 2015Q4

REPORT INFORMATION
  Report Type: Spontaneous
  Country: US (occurrence: US)
  Receive Date: 20151015
  Receipt Date: 20151015
  Transmission Date: 20160304
  Serious: Yes (Other)
  Sender: FDA-Public Use
  Company Number: US-PFIZER INC-2015341082

PATIENT
  Age: 34 Year
  Sex: Male

DRUGS (8)
  1. PIPERACILLIN/TAZOBACTAM SODIUM [Concomitant]
     Indication: ENDOCARDITIS
  2. PIPERACILLIN/TAZOBACTAM SODIUM [Concomitant]
     Indication: ENTEROCOCCAL INFECTION
     Dosage: 2.25 G, 3X/DAY (EVERY 8 HOURS)
     Route: 042
  3. LINEZOLID. [Suspect]
     Active Substance: LINEZOLID
     Indication: ENTEROCOCCAL INFECTION
     Dosage: 600 MG, 2X/DAY
     Route: 042
  4. AMPHOTERICIN B. [Concomitant]
     Active Substance: AMPHOTERICIN B
     Indication: ENDOCARDITIS
  5. AMPHOTERICIN B. [Concomitant]
     Active Substance: AMPHOTERICIN B
     Indication: ENTEROCOCCAL INFECTION
     Dosage: 300 MG, DAILY
     Route: 042
  6. MICAFUNGIN [Concomitant]
     Active Substance: MICAFUNGIN
     Indication: ENDOCARDITIS
     Dosage: 100 MG, DAILY
     Route: 042
  7. LINEZOLID. [Suspect]
     Active Substance: LINEZOLID
     Indication: ENDOCARDITIS
  8. MICAFUNGIN [Concomitant]
     Active Substance: MICAFUNGIN
     Indication: ENTEROCOCCAL INFECTION

REACTIONS (3)
  - Lactic acidosis [Recovered/Resolved]
  - Hypoglycaemia [Recovered/Resolved]
  - Pancreatitis acute [Recovered/Resolved]
